FAERS Safety Report 5071525-3 (Version None)
Quarter: 2006Q3

REPORT INFORMATION
  Report Type: 
  Country: None (occurrence: None)
  Receive Date: 20060803
  Receipt Date: 20060803
  Transmission Date: 20061208
  Serious: Yes (Hospitalization)
  Sender: FDA-Public Use
  Company Number: None

PATIENT
  Age: 72 Year
  Sex: Male
  Weight: 99.3377 kg

DRUGS (17)
  1. CLOPIDOGREL [Suspect]
     Indication: CORONARY ARTERIAL STENT INSERTION
     Dosage: 75 MG DAILY PO
     Route: 048
     Dates: start: 20050901, end: 20060802
  2. CLOPIDOGREL [Suspect]
     Indication: CORONARY ARTERY DISEASE
     Dosage: 75 MG DAILY PO
     Route: 048
     Dates: start: 20050901, end: 20060802
  3. ASPIRIN [Suspect]
     Indication: CORONARY ARTERY DISEASE
     Dosage: 81 MG DAILY PO
     Route: 048
     Dates: start: 20050901, end: 20060802
  4. ALLOPURINOL [Concomitant]
  5. AMITRIPTYLINE HCL [Concomitant]
  6. ASPIRIN [Concomitant]
  7. ATENOLOL [Concomitant]
  8. BACLOFEN [Concomitant]
  9. CIPRO [Concomitant]
  10. CLOPIDOGREL [Concomitant]
  11. EZETIMIBE [Concomitant]
  12. FINASTERIDE [Concomitant]
  13. LISINOPRIL [Concomitant]
  14. NIFEDIPINE [Concomitant]
  15. RANITIDINE [Concomitant]
  16. ROSIGLITAZONE [Concomitant]
  17. SIMVASTATIN [Concomitant]

REACTIONS (9)
  - BLADDER SPASM [None]
  - DYSURIA [None]
  - HAEMATURIA [None]
  - HAEMORRHAGE URINARY TRACT [None]
  - NEOPLASM PROSTATE [None]
  - PROSTATE EXAMINATION ABNORMAL [None]
  - PROSTATIC SPECIFIC ANTIGEN INCREASED [None]
  - URINARY BLADDER HAEMORRHAGE [None]
  - URINARY HESITATION [None]
